FAERS Safety Report 4717630-X (Version None)
Quarter: 2005Q3

REPORT INFORMATION
  Report Type: 
  Country: None (occurrence: None)
  Receive Date: 20050713
  Receipt Date: 20050405
  Transmission Date: 20060218
  Serious: Yes (Other)
  Sender: FDA-Public Use
  Company Number: 401109

PATIENT
  Age: 35 Year
  Sex: Male

DRUGS (4)
  1. FUZEON [Suspect]
     Indication: DRUG USE FOR UNKNOWN INDICATION
     Dosage: SUBCUTANEOUS
     Route: 058
     Dates: start: 20030615, end: 20050415
  2. TENOFOVIR (TENOFOVIR) [Concomitant]
  3. LAMIVUDINE [Concomitant]
  4. ATAZANAVIR (ATAZANAVIR) [Concomitant]

REACTIONS (4)
  - ABDOMINAL PAIN [None]
  - CHEST WALL PAIN [None]
  - PYREXIA [None]
  - SWELLING [None]
